FAERS Safety Report 6343424-8 (Version None)
Quarter: 2009Q3

REPORT INFORMATION
  Report Type: 
  Country: None (occurrence: None)
  Receive Date: 20090908
  Receipt Date: 20090903
  Transmission Date: 20100115
  Serious: Yes (Life-Threatening, Hospitalization)
  Sender: FDA-Public Use
  Company Number: PHHY2009HN37311

PATIENT
  Age: 32 Year
  Sex: Female
  Weight: 72.562 kg

DRUGS (1)
  1. ZELMAC [Suspect]
     Indication: IRRITABLE BOWEL SYNDROME
     Dosage: 6 MG, BID
     Route: 048
     Dates: start: 20090828, end: 20090829

REACTIONS (4)
  - ANGIOEDEMA [None]
  - BRONCHOSPASM [None]
  - CYANOSIS [None]
  - DYSPNOEA [None]
